FAERS Safety Report 22974602 (Version 3)
Quarter: 2023Q4

REPORT INFORMATION
  Report Type: Spontaneous
  Country: AT (occurrence: AT)
  Receive Date: 20230923
  Receipt Date: 20231110
  Transmission Date: 20240110
  Serious: Yes (Life-Threatening, Hospitalization, Other)
  Sender: FDA-Public Use
  Company Number: AT-MLMSERVICE-20230905-4529546-1

PATIENT
  Age: 56 Year
  Sex: Male
  Weight: 130 kg

DRUGS (7)
  1. CLOZAPINE [Suspect]
     Active Substance: CLOZAPINE
     Indication: Product used for unknown indication
     Dosage: PRESUMED INGESTED DOSE WAS 5,000 MG??150 MG 12:00, 300 MG 21:00,
     Route: 048
  2. RAMIPRIL [Concomitant]
     Active Substance: RAMIPRIL
     Dosage: 1-0-0
  3. LORAZEPAM [Concomitant]
     Active Substance: LORAZEPAM
     Dosage: 0-0-0-1
  4. HALOPERIDOL [Concomitant]
     Active Substance: HALOPERIDOL
     Dosage: 1-0-2
  5. METFORMIN HYDROCHLORIDE\SITAGLIPTIN [Concomitant]
     Active Substance: METFORMIN HYDROCHLORIDE\SITAGLIPTIN
     Dosage: 1-0-0?METFORMIN STRENGTH: 850 MG?SITAGLIPTIN STRENGTH: 50 MG
  6. LITHIUM CARBONATE [Concomitant]
     Active Substance: LITHIUM CARBONATE
     Dosage: 1-0-0
  7. ESCITALOPRAM [Concomitant]
     Active Substance: ESCITALOPRAM OXALATE
     Dosage: 1-0-0

REACTIONS (6)
  - Bradycardia [Recovered/Resolved]
  - Intentional overdose [Unknown]
  - Seizure [Recovered/Resolved]
  - Electrocardiogram QRS complex prolonged [Recovered/Resolved]
  - Extrasystoles [Recovered/Resolved]
  - Suicide attempt [Unknown]
